FAERS Safety Report 7863944-4 (Version None)
Quarter: 2011Q4

REPORT INFORMATION
  Report Type: 
  Country: None (occurrence: None)
  Receive Date: 20111028
  Receipt Date: 20111020
  Transmission Date: 20120403
  Serious: No
  Sender: FDA-Public Use
  Company Number: US-BIOGENIDEC-2011BI040194

PATIENT
  Age: 71 Year
  Sex: Male

DRUGS (2)
  1. TYSABRI [Suspect]
     Indication: MULTIPLE SCLEROSIS
     Route: 042
     Dates: start: 20060728, end: 20090514
  2. TYSABRI [Suspect]
     Route: 042
     Dates: start: 20090707, end: 20110816

REACTIONS (1)
  - DRUG INEFFECTIVE [None]
